FAERS Safety Report 8162581-4 (Version None)
Quarter: 2012Q1

REPORT INFORMATION
  Report Type: 
  Country: None (occurrence: None)
  Receive Date: 20120224
  Receipt Date: 20120214
  Transmission Date: 20120608
  Serious: Yes (Hospitalization)
  Sender: FDA-Public Use
  Company Number: US-JNJFOC-20120207795

PATIENT
  Sex: Female

DRUGS (5)
  1. LAMICTAL [Suspect]
     Indication: CONVULSION
     Route: 065
  2. TOPAMAX [Suspect]
     Indication: CONVULSION
     Route: 048
  3. EFFEXOR XR [Suspect]
     Indication: DEPRESSION
     Route: 048
  4. EFFEXOR XR [Suspect]
     Indication: ANXIETY
     Route: 048
  5. FOLIC ACID [Concomitant]
     Indication: THALASSAEMIA BETA
     Route: 065

REACTIONS (4)
  - DIVERTICULITIS [None]
  - INSOMNIA [None]
  - INCORRECT DOSE ADMINISTERED [None]
  - GRAND MAL CONVULSION [None]
